FAERS Safety Report 7032279-4 (Version None)
Quarter: 2010Q4

REPORT INFORMATION
  Report Type: 
  Country: None (occurrence: None)
  Receive Date: 20101007
  Receipt Date: 20100715
  Transmission Date: 20110411
  Serious: No
  Sender: FDA-Public Use
  Company Number: A0859759A

PATIENT
  Age: 63 Year
  Sex: Female

DRUGS (2)
  1. REQUIP XL [Suspect]
     Indication: PARKINSON'S DISEASE
     Dosage: 4MG PER DAY
     Route: 048
  2. SINEMET [Concomitant]

REACTIONS (3)
  - DRUG INEFFECTIVE [None]
  - ILL-DEFINED DISORDER [None]
  - PRODUCT QUALITY ISSUE [None]
